FAERS Safety Report 5268061-8 (Version None)
Quarter: 2007Q1

REPORT INFORMATION
  Report Type: 
  Country: None (occurrence: None)
  Receive Date: 20070315
  Receipt Date: 20070315
  Transmission Date: 20070707
  Serious: No
  Sender: FDA-Public Use
  Company Number: None

PATIENT
  Age: 59 Year
  Sex: Female
  Weight: 90.7194 kg

DRUGS (2)
  1. WELLBUTRIN XL [Suspect]
     Indication: MAJOR DEPRESSION
     Dosage: 1 TAB DAILY PO
     Route: 048
     Dates: start: 20070306, end: 20070313
  2. PROZAC [Concomitant]

REACTIONS (2)
  - DRUG EFFECT DECREASED [None]
  - THERAPEUTIC RESPONSE UNEXPECTED WITH DRUG SUBSTITUTION [None]
